FAERS Safety Report 23819111 (Version 1)
Quarter: 2024Q2

REPORT INFORMATION
  Report Type: Spontaneous
  Country: US (occurrence: US)
  Receive Date: 20240506
  Receipt Date: 20240506
  Transmission Date: 20240716
  Serious: Yes (Hospitalization)
  Sender: FDA-Public Use
  Company Number: US-GRAVITIPHARMA-GRA-2404-US-LIT-0118

PATIENT
  Age: 20 Year
  Sex: Male

DRUGS (9)
  1. FUROSEMIDE [Suspect]
     Active Substance: FUROSEMIDE
     Indication: Cardiomyopathy
  2. METOPROLOL [Suspect]
     Active Substance: METOPROLOL
     Indication: Cardiomyopathy
  3. SPIRONOLACTONE [Suspect]
     Active Substance: SPIRONOLACTONE
     Indication: Cardiomyopathy
  4. DIGOXIN [Suspect]
     Active Substance: DIGOXIN
     Indication: Cardiomyopathy
  5. DOBUTAMINE [Concomitant]
     Active Substance: DOBUTAMINE HYDROCHLORIDE
     Indication: Cardiogenic shock
  6. MILRINONE [Concomitant]
     Active Substance: MILRINONE
     Indication: Heart rate irregular
  7. SACUBITRIL\VALSARTAN [Concomitant]
     Active Substance: SACUBITRIL\VALSARTAN
     Indication: Product used for unknown indication
  8. DAPAGLIFLOZIN [Concomitant]
     Active Substance: DAPAGLIFLOZIN
     Indication: Product used for unknown indication
  9. IVABRADINE [Concomitant]
     Active Substance: IVABRADINE
     Indication: Heart rate irregular

REACTIONS (1)
  - Drug ineffective [Unknown]
